FAERS Safety Report 6340903-4 (Version None)
Quarter: 2009Q3

REPORT INFORMATION
  Report Type: 
  Country: None (occurrence: None)
  Receive Date: 20090904
  Receipt Date: 20090901
  Transmission Date: 20100115
  Serious: Yes (Hospitalization)
  Sender: FDA-Public Use
  Company Number: JP-SP-2009-03753

PATIENT
  Sex: Male

DRUGS (1)
  1. IMMUCYST [Suspect]
     Indication: CARCINOMA IN SITU OF BLADDER
     Route: 043
     Dates: start: 20090801

REACTIONS (5)
  - CULTURE URINE POSITIVE [None]
  - POLYMERASE CHAIN REACTION [None]
  - PROSTATITIS [None]
  - PYREXIA [None]
  - VESICOURETERIC REFLUX [None]
